FAERS Safety Report 21237403 (Version 1)
Quarter: 2022Q3

REPORT INFORMATION
  Report Type: Spontaneous
  Country: None (occurrence: US)
  Receive Date: 20220822
  Receipt Date: 20220822
  Transmission Date: 20221027
  Serious: No
  Sender: FDA-Public Use
  Company Number: US-Ajanta Pharma USA Inc.-2132097

PATIENT
  Age: 36 Year
  Sex: Female
  Weight: 81.818 kg

DRUGS (2)
  1. DULOXETINE [Suspect]
     Active Substance: DULOXETINE
     Indication: Stress
     Route: 048
     Dates: start: 2022
  2. VITAMIN D [Concomitant]
     Active Substance: VITAMIN D NOS

REACTIONS (9)
  - Withdrawal syndrome [Recovered/Resolved]
  - Headache [Recovered/Resolved]
  - Fatigue [Recovered/Resolved]
  - Mood altered [Recovered/Resolved]
  - Poor quality sleep [Recovered/Resolved]
  - Irritability [Recovered/Resolved]
  - Off label use [Not Recovered/Not Resolved]
  - Product substitution issue [Not Recovered/Not Resolved]
  - Drug ineffective [Not Recovered/Not Resolved]

NARRATIVE: CASE EVENT DATE: 20220523
